FAERS Safety Report 7220468-5 (Version None)
Quarter: 2011Q1

REPORT INFORMATION
  Report Type: 
  Country: None (occurrence: None)
  Receive Date: 20110111
  Receipt Date: 20101222
  Transmission Date: 20110831
  Serious: No
  Sender: FDA-Public Use
  Company Number: US-B.I. PHARMACEUTICALS,INC./RIDGEFIELD-2010-BP-15409BP

PATIENT
  Sex: Female

DRUGS (9)
  1. AMIODARONE [Concomitant]
     Indication: ATRIAL FIBRILLATION
  2. POTASSIUM [Concomitant]
     Indication: PROPHYLAXIS
  3. XANEX [Concomitant]
     Indication: DEPRESSION
  4. NADOLOL [Concomitant]
     Indication: HYPERTENSION
  5. SPIRONOLACTONE [Concomitant]
     Indication: FLUID RETENTION
  6. VENLAFAXINE [Concomitant]
     Indication: DEPRESSION
  7. PREMARIN [Concomitant]
     Indication: OESTROGEN THERAPY
  8. PRADAXA [Suspect]
     Indication: ATRIAL FIBRILLATION
     Dosage: 300 MG
     Route: 048
     Dates: start: 20101208
  9. SYNTHROID [Concomitant]
     Indication: HYPOTHYROIDISM

REACTIONS (1)
  - HEADACHE [None]
